FAERS Safety Report 11580770 (Version 6)
Quarter: 2016Q2

REPORT INFORMATION
  Report Type: Spontaneous
  Country: CA (occurrence: CA)
  Receive Date: 20151001
  Receipt Date: 20160411
  Transmission Date: 20160815
  Serious: Yes (Hospitalization, Other)
  Sender: FDA-Public Use
  Company Number: CA-ROCHE-1639972

PATIENT
  Age: 27 Year
  Sex: Female

DRUGS (14)
  1. XOLAIR [Suspect]
     Active Substance: OMALIZUMAB
     Indication: ASTHMA
     Route: 058
     Dates: start: 20150702
  2. SINGULAIR [Concomitant]
     Active Substance: MONTELUKAST SODIUM
  3. LOSEC [Concomitant]
     Active Substance: OMEPRAZOLE
  4. CORTISONE [Concomitant]
     Active Substance: CORTISONE\HYDROCORTISONE
  5. FLINTSTONES VITAMINS [Concomitant]
  6. OXEZE [Concomitant]
  7. TOCOPHEROL [Concomitant]
     Active Substance: TOCOPHEROL
  8. XOLAIR [Suspect]
     Active Substance: OMALIZUMAB
     Route: 058
     Dates: start: 20151222
  9. XOLAIR [Suspect]
     Active Substance: OMALIZUMAB
     Route: 058
     Dates: start: 20160311
  10. VENTOLIN [Concomitant]
     Active Substance: ALBUTEROL SULFATE
  11. PULMICORT TURBUHALER [Concomitant]
     Active Substance: BUDESONIDE
  12. XOLAIR [Suspect]
     Active Substance: OMALIZUMAB
     Route: 058
     Dates: start: 20160119
  13. PREDNISONE. [Concomitant]
     Active Substance: PREDNISONE
  14. AZITHROMYCIN ANHYDROUS. [Concomitant]
     Active Substance: AZITHROMYCIN ANHYDROUS

REACTIONS (8)
  - Pseudomonas infection [Unknown]
  - Respiratory rate increased [Unknown]
  - Lung infection [Unknown]
  - Concomitant disease aggravated [Unknown]
  - Pneumonia [Unknown]
  - Heart rate increased [Unknown]
  - Influenza [Unknown]
  - Cystic fibrosis [Unknown]

NARRATIVE: CASE EVENT DATE: 20150901
